FAERS Safety Report 7092525-8 (Version None)
Quarter: 2010Q4

REPORT INFORMATION
  Report Type: 
  Country: None (occurrence: None)
  Receive Date: 20101110
  Receipt Date: 20100601
  Transmission Date: 20110411
  Serious: Yes (Hospitalization, Other)
  Sender: FDA-Public Use
  Company Number: US-BAYER-201011207NA

PATIENT
  Age: 30 Year
  Sex: Female
  Weight: 120 kg

DRUGS (10)
  1. YAZ [Suspect]
     Indication: CONTRACEPTION
     Route: 048
     Dates: start: 20090201, end: 20090701
  2. YASMIN [Suspect]
     Indication: CONTRACEPTION
     Route: 048
     Dates: end: 20080101
  3. YASMIN [Suspect]
     Route: 048
     Dates: start: 20081101, end: 20090201
  4. YASMIN [Suspect]
     Route: 048
     Dates: start: 20081002
  5. OCELLA [Suspect]
     Indication: CONTRACEPTION
     Route: 048
     Dates: start: 20081001, end: 20081101
  6. XOPENEX INHALATION [Concomitant]
  7. ALBUTEROL [Concomitant]
  8. ACIPHEX [Concomitant]
     Route: 048
  9. SYNTHROID [Concomitant]
  10. METFORMIN [Concomitant]

REACTIONS (15)
  - ABDOMINAL PAIN LOWER [None]
  - ARRHYTHMIA [None]
  - ASTHMA [None]
  - BACK PAIN [None]
  - CHOLELITHIASIS [None]
  - DIARRHOEA [None]
  - DYSPNOEA [None]
  - GASTRITIS [None]
  - HEADACHE [None]
  - HIATUS HERNIA [None]
  - NAUSEA [None]
  - OESOPHAGITIS [None]
  - PALPITATIONS [None]
  - SINUS TACHYCARDIA [None]
  - VOMITING [None]
